FAERS Safety Report 23902896 (Version 2)
Quarter: 2024Q2

REPORT INFORMATION
  Report Type: Spontaneous
  Country: US (occurrence: None)
  Receive Date: 20240527
  Receipt Date: 20240531
  Transmission Date: 20240716
  Serious: No
  Sender: FDA-Public Use
  Company Number: 2024A112186

PATIENT
  Sex: Female

DRUGS (2)
  1. BYDUREON BCISE [Suspect]
     Active Substance: EXENATIDE
  2. BYDUREON [Suspect]
     Active Substance: EXENATIDE

REACTIONS (6)
  - Confusional state [Unknown]
  - Fat tissue increased [Unknown]
  - Amnesia [Unknown]
  - Device leakage [Unknown]
  - Device use issue [Unknown]
  - Blood glucose increased [Unknown]
